FAERS Safety Report 10206358 (Version 1)
Quarter: 2014Q2

REPORT INFORMATION
  Report Type: Report from Study
  Country: FR (occurrence: FR)
  Receive Date: 20140530
  Receipt Date: 20140530
  Transmission Date: 20141212
  Serious: Yes (Other)
  Sender: FDA-Public Use
  Company Number: FR-CELGENEUS-056-21880-14053102

PATIENT
  Age: 73 Year
  Sex: Female

DRUGS (2)
  1. RITUXIMAB [Suspect]
     Indication: LYMPHOMA
     Route: 065
     Dates: start: 20131017, end: 20140224
  2. BENDAMUSTINE [Suspect]
     Indication: LYMPHOMA
     Route: 048

REACTIONS (1)
  - Ovarian epithelial cancer metastatic [Not Recovered/Not Resolved]
